FAERS Safety Report 6152023-2 (Version None)
Quarter: 2009Q2

REPORT INFORMATION
  Report Type: 
  Country: None (occurrence: None)
  Receive Date: 20090410
  Receipt Date: 20090402
  Transmission Date: 20091009
  Serious: Yes (Other)
  Sender: FDA-Public Use
  Company Number: PHHY2009BE10675

PATIENT
  Sex: Female

DRUGS (3)
  1. RASILEZ [Suspect]
     Indication: HYPERTENSION
     Dosage: 300 MG DAILY
  2. SIMVASTATIN [Concomitant]
  3. GAMBARAN [Concomitant]
     Dosage: IF NEEDED

REACTIONS (3)
  - REACTION TO DRUG EXCIPIENTS [None]
  - SYNCOPE [None]
  - VERTIGO [None]
